FAERS Safety Report 24264386 (Version 1)
Quarter: 2024Q3

REPORT INFORMATION
  Report Type: Spontaneous
  Country: ZA (occurrence: None)
  Receive Date: 20240829
  Receipt Date: 20240829
  Transmission Date: 20241016
  Serious: Yes (Other)
  Sender: ASTRAZENECA
  Company Number: 2024A194309

PATIENT
  Sex: Female

DRUGS (1)
  1. BUDESONIDE\FORMOTEROL FUMARATE DIHYDRATE [Suspect]
     Active Substance: BUDESONIDE\FORMOTEROL FUMARATE DIHYDRATE
     Dosage: 160/4.5, UNKNOWN UNKNOWN
     Route: 055

REACTIONS (2)
  - Asthenia [Unknown]
  - Dizziness [Unknown]
